FAERS Safety Report 5948171-X (Version None)
Quarter: 2008Q4

REPORT INFORMATION
  Report Type: 
  Country: None (occurrence: None)
  Receive Date: 20081107
  Receipt Date: 20081024
  Transmission Date: 20090506
  Serious: Yes (Hospitalization, Other)
  Sender: FDA-Public Use
  Company Number: ENTC2008-0350

PATIENT
  Age: 74 Year
  Sex: Male

DRUGS (8)
  1. STALEVO 100 [Suspect]
     Indication: PARKINSON'S DISEASE
     Dosage: 750/187,5/1000MG
     Dates: start: 20080601
  2. PLAVIX [Concomitant]
  3. TAHOR [Concomitant]
  4. INIPOMP [Concomitant]
  5. SECTRAL [Concomitant]
  6. DEROXAT [Concomitant]
  7. RIVOTRIL [Concomitant]
  8. REQUIP [Concomitant]

REACTIONS (4)
  - ABDOMINAL PAIN [None]
  - CONSTIPATION [None]
  - DEHYDRATION [None]
  - DIARRHOEA [None]
